FAERS Safety Report 5337616-4 (Version None)
Quarter: 2007Q2

REPORT INFORMATION
  Report Type: 
  Country: None (occurrence: None)
  Receive Date: 20070524
  Receipt Date: 20070516
  Transmission Date: 20071010
  Serious: Yes (Other)
  Sender: FDA-Public Use
  Company Number: 163-20785-07050889

PATIENT

DRUGS (8)
  1. THALOMID [Suspect]
     Indication: MYELODYSPLASTIC SYNDROME
     Dosage: 50MG X2 WEEKS THEN 100MG QD, ORAL
     Route: 048
     Dates: start: 20050101
  2. THALOMID [Suspect]
     Indication: MYELOFIBROSIS
     Dosage: 50MG X2 WEEKS THEN 100MG QD, ORAL
     Route: 048
     Dates: start: 20050101
  3. ARSENIC TRIOXIDE (ARSENIC TRIOXIDE) [Suspect]
     Indication: MYELODYSPLASTIC SYNDROME
     Dosage: 0.25 MG/KG QD DAYS 1-5 WEEK 1 THEN BIW WEEKS 2-12, INTRAVENOUS
     Route: 042
     Dates: start: 20050101, end: 20060601
  4. ARSENIC TRIOXIDE (ARSENIC TRIOXIDE) [Suspect]
     Indication: MYELOFIBROSIS
     Dosage: 0.25 MG/KG QD DAYS 1-5 WEEK 1 THEN BIW WEEKS 2-12, INTRAVENOUS
     Route: 042
     Dates: start: 20050101, end: 20060601
  5. DEXAMETHASONE TAB [Suspect]
     Indication: MYELODYSPLASTIC SYNDROME
     Dosage: 4 MG, QD X5 DAYS Q4W, ORAL
     Route: 048
     Dates: start: 20050101, end: 20060601
  6. DEXAMETHASONE TAB [Suspect]
     Indication: MYELOFIBROSIS
     Dosage: 4 MG, QD X5 DAYS Q4W, ORAL
     Route: 048
     Dates: start: 20050101, end: 20060601
  7. ASCORBIC ACID [Suspect]
     Indication: MYELODYSPLASTIC SYNDROME
     Dosage: 1000MG 1-2 HOURS PRIOR TO EACH ATO INFUSION, ORAL
     Route: 048
     Dates: start: 20050101, end: 20060601
  8. ASCORBIC ACID [Suspect]
     Indication: MYELOFIBROSIS
     Dosage: 1000MG 1-2 HOURS PRIOR TO EACH ATO INFUSION, ORAL
     Route: 048
     Dates: start: 20050101, end: 20060601

REACTIONS (10)
  - DRUG TOXICITY [None]
  - DYSPNOEA [None]
  - FATIGUE [None]
  - HAEMATOMA [None]
  - HERPES ZOSTER [None]
  - OEDEMA [None]
  - PERICARDIAL EFFUSION [None]
  - PLATELET COUNT DECREASED [None]
  - PLEURAL EFFUSION [None]
  - POLYNEUROPATHY [None]
